FAERS Safety Report 6421000-6 (Version None)
Quarter: 2009Q4

REPORT INFORMATION
  Report Type: 
  Country: None (occurrence: None)
  Receive Date: 20091030
  Receipt Date: 20091022
  Transmission Date: 20100525
  Serious: Yes (Other)
  Sender: FDA-Public Use
  Company Number: US-JNJFOC-20091008007

PATIENT
  Sex: Female
  Weight: 83.01 kg

DRUGS (2)
  1. DURAGESIC-100 [Suspect]
     Indication: FIBROMYALGIA
     Route: 062
     Dates: start: 20010101, end: 20091015
  2. HYDROCODONE [Concomitant]
     Indication: PAIN
     Dosage: 25/ 75 MG AS NEEDED
     Route: 048

REACTIONS (1)
  - HYPOTHYROIDISM [None]
